FAERS Safety Report 21560032 (Version 2)
Quarter: 2023Q1

REPORT INFORMATION
  Report Type: Spontaneous
  Country: CA (occurrence: CA)
  Receive Date: 20221107
  Receipt Date: 20230113
  Transmission Date: 20230418
  Serious: Yes (Other)
  Sender: FDA-Public Use
  Company Number: CA-ASPEN-GLO2021CA002389

PATIENT
  Age: 36 Year
  Sex: Male

DRUGS (9)
  1. CIPROFLOXACIN [Suspect]
     Active Substance: CIPROFLOXACIN
     Indication: Product used for unknown indication
     Dosage: UNK
     Route: 065
  2. CIPROFLOXACIN [Suspect]
     Active Substance: CIPROFLOXACIN
     Dosage: UNK
     Route: 065
  3. AZATHIOPRINE SODIUM [Suspect]
     Active Substance: AZATHIOPRINE SODIUM
     Indication: Product used for unknown indication
     Dosage: 50 MG, QD
     Route: 065
  4. FLAGYL [Suspect]
     Active Substance: METRONIDAZOLE\METRONIDAZOLE HYDROCHLORIDE
     Indication: Product used for unknown indication
     Dosage: 750 MG, QD (3 DOSE DAILY)
     Route: 065
  5. FLAGYL [Suspect]
     Active Substance: METRONIDAZOLE\METRONIDAZOLE HYDROCHLORIDE
     Dosage: 250 MG, TID
     Route: 048
  6. PREDNISONE [Suspect]
     Active Substance: PREDNISONE
     Indication: Product used for unknown indication
     Dosage: 40 MG
     Route: 065
  7. METRONIDAZOLE [Suspect]
     Active Substance: METRONIDAZOLE
     Indication: Product used for unknown indication
     Dosage: UNK
     Route: 042
  8. ENTOCORT [Concomitant]
     Active Substance: BUDESONIDE
     Indication: Product used for unknown indication
     Dosage: UNK (SUSTAINED RELEASE)
     Route: 065
  9. IRON [Concomitant]
     Active Substance: IRON
     Indication: Product used for unknown indication
     Dosage: 250 MG
     Route: 048

REACTIONS (5)
  - Myocarditis [Not Recovered/Not Resolved]
  - Urticaria [Not Recovered/Not Resolved]
  - Hypersensitivity [Not Recovered/Not Resolved]
  - Nausea [Not Recovered/Not Resolved]
  - Drug ineffective [Not Recovered/Not Resolved]
